FAERS Safety Report 21118881 (Version 1)
Quarter: 2022Q3

REPORT INFORMATION
  Report Type: Report from Study
  Country: US (occurrence: None)
  Receive Date: 20220722
  Receipt Date: 20220722
  Transmission Date: 20221027
  Serious: Yes (Other)
  Sender: FDA-Public Use
  Company Number: US-ROCHE-3135483

PATIENT
  Age: 80 Year
  Sex: Female
  Weight: 62.1 kg

DRUGS (20)
  1. PIRFENIDONE [Suspect]
     Active Substance: PIRFENIDONE
     Indication: Idiopathic pulmonary fibrosis
     Route: 048
     Dates: start: 2019
  2. NINTEDANIB [Suspect]
     Active Substance: NINTEDANIB
     Indication: Idiopathic pulmonary fibrosis
     Route: 048
     Dates: start: 2019
  3. BUDESONIDE [Concomitant]
     Active Substance: BUDESONIDE
     Indication: Bronchitis chronic
     Route: 055
     Dates: start: 201309
  4. METOPROLOL SUCCINATE [Concomitant]
     Active Substance: METOPROLOL SUCCINATE
     Indication: Hypertension
     Route: 048
     Dates: start: 20160916
  5. LISINOPRIL [Concomitant]
     Active Substance: LISINOPRIL
     Indication: Hypertension
     Route: 048
     Dates: start: 20130513
  6. PANTOPRAZOLE [Concomitant]
     Active Substance: PANTOPRAZOLE
     Route: 048
     Dates: start: 20130715
  7. PREDNISONE [Concomitant]
     Active Substance: PREDNISONE
     Indication: Pulmonary fibrosis
     Route: 048
     Dates: start: 201309
  8. SERTRALINE [Concomitant]
     Active Substance: SERTRALINE HYDROCHLORIDE
     Indication: Depression
     Route: 048
     Dates: start: 2017
  9. SPIRIVA [Concomitant]
     Active Substance: TIOTROPIUM BROMIDE MONOHYDRATE
     Indication: Bronchitis chronic
     Route: 055
     Dates: start: 201909
  10. LORAZEPAM [Concomitant]
     Active Substance: LORAZEPAM
     Indication: Anxiety
     Route: 048
     Dates: start: 2018
  11. ASPIRIN [Concomitant]
     Active Substance: ASPIRIN
     Indication: Angina pectoris
     Route: 048
     Dates: start: 2002
  12. ATORVASTATIN [Concomitant]
     Active Substance: ATORVASTATIN
     Indication: Hyperlipidaemia
     Route: 048
     Dates: start: 20200102
  13. RANOLAZINE [Concomitant]
     Active Substance: RANOLAZINE
     Indication: Angina pectoris
     Route: 048
     Dates: start: 202108
  14. CALCIUM CITRATE [Concomitant]
     Active Substance: CALCIUM CITRATE
     Dosage: 1U
     Route: 048
     Dates: start: 2015
  15. NAC 600 [Concomitant]
     Dosage: 1U
     Route: 048
  16. NITROGLYCERIN [Concomitant]
     Active Substance: NITROGLYCERIN
     Indication: Angina pectoris
     Route: 048
     Dates: start: 2002
  17. ALBUTEROL SULFATE [Concomitant]
     Active Substance: ALBUTEROL SULFATE
     Indication: Bronchitis chronic
     Route: 055
     Dates: start: 2006
  18. ALBUTEROL SULFATE [Concomitant]
     Active Substance: ALBUTEROL SULFATE
     Indication: Pulmonary fibrosis
  19. VOLTAREN [Concomitant]
     Active Substance: DICLOFENAC SODIUM
     Indication: Bursitis
     Route: 061
     Dates: start: 20211030
  20. FORMOTEROL FUMARATE DIHYDRATE [Concomitant]
     Active Substance: FORMOTEROL FUMARATE DIHYDRATE
     Indication: Bronchitis chronic
     Dosage: 4.5 OTHER
     Route: 055
     Dates: start: 201309

REACTIONS (1)
  - Idiopathic pulmonary fibrosis [Not Recovered/Not Resolved]

NARRATIVE: CASE EVENT DATE: 20220106
